FAERS Safety Report 8486240-3 (Version None)
Quarter: 2012Q3

REPORT INFORMATION
  Report Type: 
  Country: None (occurrence: None)
  Receive Date: 20120703
  Receipt Date: 20120627
  Transmission Date: 20120928
  Serious: Yes (Hospitalization)
  Sender: FDA-Public Use
  Company Number: US-PURDUE-USA-2012-0089279

PATIENT
  Age: 64 Year
  Sex: Male

DRUGS (14)
  1. METOCLOPRAMIDE [Concomitant]
     Indication: GASTROOESOPHAGEAL REFLUX DISEASE
     Dosage: UNK
     Dates: start: 20111119, end: 20111219
  2. CIPROFLOXACIN HYDROCHLORIDE [Concomitant]
     Indication: PROPHYLAXIS
     Dosage: UNK
     Dates: start: 20111119, end: 20111126
  3. SULFAMETHOXAZOLE AND TRIMETHOPRIM [Concomitant]
     Indication: PRODUCT USED FOR UNKNOWN INDICATION
     Dosage: UNK
     Dates: start: 20111121, end: 20111128
  4. ZOLPIDEM TARTRATE [Concomitant]
     Indication: INSOMNIA
     Dosage: UNK
     Dates: start: 20110617, end: 20120128
  5. POTASSIUM CHLORIDE [Concomitant]
     Indication: HYPOKALAEMIA
     Dosage: UNK
     Dates: start: 20111122, end: 20111124
  6. MORPHINE SULFATE [Suspect]
     Indication: ABDOMINAL PAIN
     Dosage: UNK
     Dates: start: 20111119, end: 20111126
  7. PREDNISONE [Suspect]
     Indication: PNEUMONITIS
     Dosage: UNK
     Dates: start: 20111128, end: 20120128
  8. MAGNESIUM HYDROXIDE TAB [Concomitant]
     Indication: HYPOMAGNESAEMIA
     Dosage: UNK
     Dates: start: 20111121
  9. ONDANSETRON [Concomitant]
     Indication: NAUSEA
     Dosage: UNK
     Dates: start: 20111119, end: 20111219
  10. PRAVASTATIN [Suspect]
     Indication: PRODUCT USED FOR UNKNOWN INDICATION
     Dosage: UNK
     Dates: start: 20111003
  11. ENOXAPARIN SODIUM [Concomitant]
     Indication: DEEP VEIN THROMBOSIS
     Dosage: UNK
     Dates: start: 20111120, end: 20111127
  12. MAGNESIUM CITRATE [Concomitant]
     Indication: HYPOMAGNESAEMIA
     Dosage: UNK
     Dates: start: 20111122
  13. ONDANSETRON [Concomitant]
     Indication: VOMITING
  14. FLUCONAZOLE [Concomitant]
     Indication: ORAL CANDIDIASIS
     Dosage: UNK
     Dates: start: 20110808, end: 20111229

REACTIONS (1)
  - RASH VESICULAR [None]
